FAERS Safety Report 8942308 (Version 1)
Quarter: 2012Q4

REPORT INFORMATION
  Report Type: Spontaneous
  Country: US (occurrence: None)
  Receive Date: 20121123
  Receipt Date: 20121123
  Transmission Date: 20130627
  Serious: Yes (Other)
  Sender: FDA-Public Use
  Company Number: MIN-00883

PATIENT
  Age: 40 Year
  Sex: Female

DRUGS (1)
  1. MINOCYCLINE [Suspect]
     Indication: ACNE
     Route: 048

REACTIONS (5)
  - Arteritis [None]
  - Antinuclear antibody positive [None]
  - Histone antibody positive [None]
  - Antiphospholipid antibodies positive [None]
  - Activated partial thromboplastin time prolonged [None]
